FAERS Safety Report 10242995 (Version 1)
Quarter: 2014Q2

REPORT INFORMATION
  Report Type: Spontaneous
  Country: US (occurrence: US)
  Receive Date: 20140618
  Receipt Date: 20140618
  Transmission Date: 20141212
  Serious: No
  Sender: FDA-Public Use
  Company Number: US-TEVA-488833USA

PATIENT
  Sex: Female

DRUGS (1)
  1. CLARAVIS [Suspect]
     Dates: start: 20140513

REACTIONS (1)
  - Vision blurred [Unknown]
